FAERS Safety Report 13551943 (Version 1)
Quarter: 2017Q2

REPORT INFORMATION
  Report Type: Spontaneous
  Country: None (occurrence: GB)
  Receive Date: 20170516
  Receipt Date: 20170516
  Transmission Date: 20170830
  Serious: Yes (Disabling, Other)
  Sender: FDA-Public Use
  Company Number: GB-ALLERGAN-1719127US

PATIENT
  Age: 58 Year
  Sex: Female
  Weight: 63.5 kg

DRUGS (6)
  1. BOTOX [Suspect]
     Active Substance: ONABOTULINUMTOXINA
     Dosage: , SINGLE
     Route: 030
     Dates: start: 20160720, end: 20160720
  2. MAGNESIUM [Concomitant]
     Active Substance: MAGNESIUM
     Indication: PRODUCT USED FOR UNKNOWN INDICATION
  3. BOTOX [Suspect]
     Active Substance: ONABOTULINUMTOXINA
     Dosage: , SINGLE
     Route: 030
     Dates: start: 20160211, end: 20160211
  4. BOTOX [Suspect]
     Active Substance: ONABOTULINUMTOXINA
     Indication: MIGRAINE
     Dosage: 150 UNITS, SINGLE
     Route: 030
     Dates: start: 20170405, end: 20170405
  5. LYSINE [Concomitant]
     Active Substance: LYSINE
     Indication: PRODUCT USED FOR UNKNOWN INDICATION
  6. ZINC. [Concomitant]
     Active Substance: ZINC
     Indication: PRODUCT USED FOR UNKNOWN INDICATION

REACTIONS (13)
  - Head discomfort [Unknown]
  - Headache [Unknown]
  - Lacrimation increased [Unknown]
  - Malaise [Unknown]
  - Influenza like illness [Recovered/Resolved]
  - Injection site pain [Unknown]
  - Back pain [Not Recovered/Not Resolved]
  - Musculoskeletal pain [Not Recovered/Not Resolved]
  - Neck pain [Not Recovered/Not Resolved]
  - Dysphonia [Unknown]
  - Dry mouth [Unknown]
  - Mood altered [Unknown]
  - Fatigue [Unknown]

NARRATIVE: CASE EVENT DATE: 20170406
